FAERS Safety Report 6226344-9 (Version None)
Quarter: 2009Q2

REPORT INFORMATION
  Report Type: 
  Country: None (occurrence: None)
  Receive Date: 20090612
  Receipt Date: 20090605
  Transmission Date: 20091009
  Serious: Yes (Other)
  Sender: FDA-Public Use
  Company Number: KR-JNJFOC-20090602025

PATIENT
  Age: 78 Year
  Sex: Female

DRUGS (1)
  1. DURAGESIC-100 [Suspect]
     Indication: ABDOMINAL PAIN
     Route: 062

REACTIONS (6)
  - APNOEA [None]
  - ASTHENIA [None]
  - COLD SWEAT [None]
  - ILL-DEFINED DISORDER [None]
  - PRURITUS [None]
  - TREMOR [None]
